FAERS Safety Report 7619752-2 (Version None)
Quarter: 2011Q3

REPORT INFORMATION
  Report Type: 
  Country: None (occurrence: None)
  Receive Date: 20110719
  Receipt Date: 20110706
  Transmission Date: 20111222
  Serious: Yes (Hospitalization)
  Sender: FDA-Public Use
  Company Number: US-CELGENEUS-163-21880-11030303

PATIENT
  Sex: Male

DRUGS (6)
  1. REVLIMID [Suspect]
     Dosage: 5 MILLIGRAM
     Route: 048
     Dates: start: 20101007
  2. REVLIMID [Suspect]
     Dosage: 20 MILLIGRAM
     Route: 048
     Dates: start: 20080501
  3. REVLIMID [Suspect]
     Dosage: 15 MILLIGRAM
     Route: 048
     Dates: start: 20081101, end: 20090101
  4. REVLIMID [Suspect]
     Dosage: 10 MILLIGRAM
     Route: 048
     Dates: start: 20090301
  5. REVLIMID [Suspect]
     Indication: MULTIPLE MYELOMA
     Dosage: 10 MILLIGRAM
     Route: 048
     Dates: start: 20080310, end: 20080101
  6. REVLIMID [Suspect]
     Dosage: 10 MILLIGRAM
     Route: 048
     Dates: start: 20100101, end: 20100401

REACTIONS (3)
  - MYOCARDIAL INFARCTION [None]
  - FLUID RETENTION [None]
  - FATIGUE [None]
